FAERS Safety Report 8559527-3 (Version None)
Quarter: 2012Q3

REPORT INFORMATION
  Report Type: 
  Country: None (occurrence: None)
  Receive Date: 20120802
  Receipt Date: 20120726
  Transmission Date: 20120928
  Serious: Yes (Hospitalization)
  Sender: FDA-Public Use
  Company Number: US-AMGEN-USASP2012028620

PATIENT
  Age: 86 Year
  Sex: Male
  Weight: 82.7 kg

DRUGS (3)
  1. PROCRIT [Suspect]
     Indication: NEPHROGENIC ANAEMIA
     Dosage: 20000 IU, QWK
     Route: 058
     Dates: start: 20110701, end: 20120401
  2. PROCRIT [Suspect]
     Dosage: UNK
     Route: 058
     Dates: start: 20111024
  3. IRON [Concomitant]
     Dosage: UNK
     Dates: start: 20011213

REACTIONS (11)
  - ABASIA [None]
  - THERAPEUTIC RESPONSE DECREASED [None]
  - HAEMATOCRIT DECREASED [None]
  - CARDIAC FAILURE [None]
  - PNEUMONIA [None]
  - IRON DEFICIENCY [None]
  - MYOCARDIAL ISCHAEMIA [None]
  - BLOOD PRODUCT TRANSFUSION DEPENDENT [None]
  - PYREXIA [None]
  - HYPOTENSION [None]
  - OSTEOARTHRITIS [None]
